FAERS Safety Report 6567156-6 (Version None)
Quarter: 2010Q1

REPORT INFORMATION
  Report Type: 
  Country: None (occurrence: None)
  Receive Date: 20100202
  Receipt Date: 20100121
  Transmission Date: 20100710
  Serious: Yes (Life-Threatening, Hospitalization)
  Sender: FDA-Public Use
  Company Number: US-SANOFI-AVENTIS-F03200800074

PATIENT
  Age: 78 Year
  Sex: Male
  Weight: 60.8 kg

DRUGS (15)
  1. OXALIPLATIN [Suspect]
     Dosage: DOSE TEXT: 137 MG (85 MG/M2) EVERY 2 WEEKS
     Route: 042
     Dates: start: 20080317, end: 20080317
  2. OXALIPLATIN [Suspect]
     Route: 042
     Dates: start: 20070312, end: 20070312
  3. FLUOROURACIL [Suspect]
     Dosage: DOSE TEXT: 648 MG (400 MG/M2) PUSH AND 3888 MG (2400 MG/M2) INFUSION EVERY 2 WEEKS
     Route: 042
     Dates: start: 20080317, end: 20080317
  4. FLUOROURACIL [Suspect]
     Route: 042
     Dates: start: 20071112, end: 20071112
  5. FLUOROURACIL [Suspect]
     Route: 042
     Dates: start: 20071112, end: 20071112
  6. FLUOROURACIL [Suspect]
     Route: 042
     Dates: start: 20080319, end: 20080319
  7. LEUCOVORIN CALCIUM [Suspect]
     Route: 042
     Dates: start: 20080317, end: 20080317
  8. LEUCOVORIN CALCIUM [Suspect]
     Route: 042
     Dates: start: 20071112, end: 20071112
  9. AVASTIN [Suspect]
     Dosage: DOSE TEXT: 268 MG (5 MG/KG) EVERY 2 WEEKS
     Route: 042
     Dates: start: 20080317, end: 20080317
  10. AVASTIN [Suspect]
     Route: 042
     Dates: start: 20071112, end: 20071112
  11. ZOFRAN [Concomitant]
     Route: 048
     Dates: start: 20080322, end: 20080323
  12. PRILOSEC [Concomitant]
     Route: 048
     Dates: start: 20080322, end: 20080101
  13. ALTERNAGEL [Concomitant]
     Route: 048
     Dates: start: 20080317, end: 20080101
  14. LASIX [Concomitant]
     Route: 048
     Dates: start: 20080317, end: 20080101
  15. CASANTHRANOL/DOCUSATE SODIUM [Concomitant]
     Route: 048
     Dates: start: 20080317, end: 20080101

REACTIONS (5)
  - ANAEMIA [None]
  - DEEP VEIN THROMBOSIS [None]
  - GASTROINTESTINAL HAEMORRHAGE [None]
  - OESOPHAGITIS [None]
  - SHOCK HAEMORRHAGIC [None]
